FAERS Safety Report 9016104 (Version 1)
Quarter: 2013Q1

REPORT INFORMATION
  Report Type: Spontaneous
  Country: US (occurrence: US)
  Receive Date: 20130116
  Receipt Date: 20130116
  Transmission Date: 20140127
  Serious: Yes (Hospitalization)
  Sender: FDA-Public Use
  Company Number: US-GILEAD-2013-0067795

PATIENT
  Sex: Male

DRUGS (1)
  1. LETAIRIS [Suspect]
     Indication: PULMONARY HYPERTENSION
     Dosage: 5 MG, QD
     Route: 048

REACTIONS (7)
  - Musculoskeletal pain [Unknown]
  - Sepsis [Unknown]
  - Mass [Unknown]
  - Abscess [Unknown]
  - Infection [Unknown]
  - Culture positive [Unknown]
  - Bone disorder [Unknown]
